FAERS Safety Report 5938098-1 (Version None)
Quarter: 2008Q4

REPORT INFORMATION
  Report Type: 
  Country: None (occurrence: None)
  Receive Date: 20081031
  Receipt Date: 20081027
  Transmission Date: 20090506
  Serious: Yes (Death)
  Sender: FDA-Public Use
  Company Number: PHHY2008US26083

PATIENT
  Sex: Female

DRUGS (10)
  1. CLOZARIL [Suspect]
     Indication: SCHIZOPHRENIA
     Dosage: 550 MG, QD
     Route: 048
  2. CLOZARIL [Suspect]
     Indication: OBSESSIVE-COMPULSIVE DISORDER
  3. KLONOPIN [Concomitant]
  4. CORGARD [Concomitant]
  5. BENADRYL [Concomitant]
  6. PROZAC [Concomitant]
  7. PROCARDIA [Concomitant]
  8. XOPENEX [Concomitant]
  9. SINGULAIR [Concomitant]
  10. PROTONIX [Concomitant]

REACTIONS (1)
  - CHOKING [None]
